FAERS Safety Report 4776308-7 (Version None)
Quarter: 2005Q3

REPORT INFORMATION
  Report Type: 
  Country: None (occurrence: None)
  Receive Date: 20050921
  Receipt Date: 20050913
  Transmission Date: 20060218
  Serious: Yes (Hospitalization)
  Sender: FDA-Public Use
  Company Number: SEWYE985516SEP05

PATIENT
  Age: 76 Year
  Sex: Male

DRUGS (7)
  1. TAZOCIN (PIPERACILLIN/TAZOBACTAM, INJECTION) [Suspect]
     Indication: CHOLECYSTITIS
     Dosage: THE DOSE REGIMEN WAS NOT SPECIFIED
     Route: 042
     Dates: start: 20040101, end: 20040101
  2. CEFAMOX (CEFADROXIL, , 0) [Suspect]
     Indication: CHOLECYSTITIS
     Dosage: THE DOSE REGIMEN WAS NOT SPECIFIED ORAL
     Route: 048
     Dates: start: 20040101, end: 20040101
  3. CLAFORAN (CEFOTAXIME SODIUM, , 0) [Suspect]
     Indication: CHOLECYSTITIS
     Dosage: THE DOSE REGIMEN WAS NOT SPECIFIED INTRAVENOUS
     Route: 042
     Dates: start: 20040101, end: 20040101
  4. FASIGYN (TINIDAZOLE, , 0) [Suspect]
     Indication: CHOLECYSTITIS
     Dosage: THE DOSE REGIMEN WAS NOT SPECIFIED ORAL
     Route: 048
     Dates: start: 20040101, end: 20040101
  5. KETOGAN NOVUM (KETOBEMIDONE HYDROCHLORIDE, , 0) [Suspect]
     Indication: CHOLECYSTITIS
     Dosage: THE DOSE REGIMEN WAS NOT SPECIFIED ORAL
     Route: 048
     Dates: start: 20040101, end: 20040101
  6. TAVEGYL (CLEMASTINE, , 0) [Suspect]
     Indication: CHOLECYSTITIS
     Dosage: THE DOSE REGIMEN WAS NOT SPECIFIED ORAL
     Route: 048
     Dates: start: 20040101, end: 20040101
  7. VOLTAREN [Suspect]
     Indication: CHOLECYSTITIS
     Dosage: THE DOSE REGIMEN WAS NOT SPECIFIED ORAL
     Route: 048
     Dates: start: 20040101, end: 20040101

REACTIONS (1)
  - PAROSMIA [None]
